FAERS Safety Report 23143413 (Version 1)
Quarter: 2023Q4

REPORT INFORMATION
  Report Type: Spontaneous
  Country: BR (occurrence: BR)
  Receive Date: 20231103
  Receipt Date: 20231103
  Transmission Date: 20240110
  Serious: Yes (Death)
  Sender: FDA-Public Use
  Company Number: BR-PFIZER INC-PV202300176621

PATIENT
  Age: 31 Year
  Sex: Male

DRUGS (7)
  1. METHYLPREDNISOLONE ACETATE [Suspect]
     Active Substance: METHYLPREDNISOLONE ACETATE
     Indication: Castleman^s disease
     Dosage: 1 G, DAILY
     Route: 042
     Dates: start: 2023
  2. METHYLPREDNISOLONE ACETATE [Suspect]
     Active Substance: METHYLPREDNISOLONE ACETATE
     Indication: Human herpesvirus 8 infection
  3. ETOPOSIDE [Suspect]
     Active Substance: ETOPOSIDE
     Indication: Castleman^s disease
     Dosage: 50 MG/M2, DAILY
     Route: 042
     Dates: start: 2023
  4. ETOPOSIDE [Suspect]
     Active Substance: ETOPOSIDE
     Indication: Human herpesvirus 6 infection
  5. PREDNISONE [Concomitant]
     Active Substance: PREDNISONE
     Indication: Castleman^s disease
     Dosage: 1 MG/KG, DAILY
     Dates: start: 2023
  6. PREDNISONE [Concomitant]
     Active Substance: PREDNISONE
     Indication: Human herpesvirus 8 infection
  7. PREDNISONE [Concomitant]
     Active Substance: PREDNISONE
     Indication: Kaposi^s sarcoma

REACTIONS (2)
  - Drug ineffective for unapproved indication [Fatal]
  - Off label use [Fatal]

NARRATIVE: CASE EVENT DATE: 20230101
